FAERS Safety Report 5165197-7 (Version None)
Quarter: 2006Q4

REPORT INFORMATION
  Report Type: 
  Country: None (occurrence: None)
  Receive Date: 20061127
  Receipt Date: 20061110
  Transmission Date: 20070319
  Serious: Yes (Other)
  Sender: FDA-Public Use
  Company Number: 032-82

PATIENT
  Age: 51 Year
  Sex: Male

DRUGS (5)
  1. TEVETEN [Suspect]
     Indication: HYPERTENSION
     Dates: start: 20060818, end: 20061002
  2. ASPIRIN [Concomitant]
  3. ATENOLOL [Concomitant]
  4. ATOVASTATIN [Concomitant]
  5. LERCANIDIPINE [Concomitant]

REACTIONS (1)
  - ERECTILE DYSFUNCTION [None]
